FAERS Safety Report 7306236-4 (Version None)
Quarter: 2011Q1

REPORT INFORMATION
  Report Type: 
  Country: None (occurrence: None)
  Receive Date: 20110222
  Receipt Date: 20110217
  Transmission Date: 20110831
  Serious: Yes (Death, Hospitalization)
  Sender: FDA-Public Use
  Company Number: CHPA2011GB02894

PATIENT
  Age: 87 Year
  Sex: Female
  Weight: 50.8 kg

DRUGS (15)
  1. LEVOTHYROXINE [Concomitant]
     Dosage: 50 UG, QD
     Route: 065
  2. IBUPROFEN [Suspect]
     Dosage: 600 MG, TID
     Route: 065
     Dates: start: 20080101, end: 20100919
  3. TRIMETHOPRIM [Suspect]
     Indication: URINARY TRACT INFECTION
     Dosage: 200 MG, BID
     Route: 065
     Dates: start: 20100918
  4. MOVICOL [Concomitant]
     Dosage: 1 DF, UNK
     Route: 065
  5. OMEPRAZOLE [Concomitant]
     Dosage: 20 MG, QD
     Route: 065
  6. PARACETAMOL [Concomitant]
     Dosage: 1 G, QID
     Route: 065
  7. FUROSEMIDE [Concomitant]
     Dosage: 40 MG, QD
     Route: 065
  8. WARFARIN [Suspect]
     Dosage: UNK, UNK
     Route: 065
     Dates: start: 20100831, end: 20100919
  9. FENTANYL [Concomitant]
     Dosage: 75 UG, UNK
     Route: 023
     Dates: start: 20080101
  10. ZOPICLONE [Concomitant]
     Dosage: 3.75 MG, UNK
     Route: 065
  11. FRAGMIN [Suspect]
     Indication: THROMBOSIS PROPHYLAXIS
     Dosage: 5000 IU, QD
     Dates: start: 20101005
  12. DIHYDROCODEINE BITARTRATE INJ [Concomitant]
     Dosage: 30 MG, QID
     Route: 065
  13. WARFARIN [Suspect]
     Dosage: UNK, UNK
     Route: 065
     Dates: start: 20100923, end: 20100929
  14. WARFARIN [Suspect]
     Indication: DEEP VEIN THROMBOSIS
     Dosage: 3 MG, UNK
     Route: 065
     Dates: start: 20101005, end: 20101007
  15. FRAGMIN [Suspect]
     Indication: DEEP VEIN THROMBOSIS
     Dosage: 10000 IU, QD
     Route: 058
     Dates: start: 20100807, end: 20100919

REACTIONS (11)
  - INJECTION SITE HAEMORRHAGE [None]
  - SUBCUTANEOUS HAEMATOMA [None]
  - SOMNOLENCE [None]
  - GENERAL PHYSICAL HEALTH DETERIORATION [None]
  - OVERDOSE [None]
  - BLOOD PRESSURE DECREASED [None]
  - ANTICOAGULATION DRUG LEVEL ABOVE THERAPEUTIC [None]
  - DYSPHAGIA [None]
  - LOWER RESPIRATORY TRACT INFECTION [None]
  - URINARY TRACT INFECTION [None]
  - CONTUSION [None]
